FAERS Safety Report 14246713 (Version 11)
Quarter: 2019Q3

REPORT INFORMATION
  Report Type: Spontaneous
  Country: US (occurrence: US)
  Receive Date: 20171204
  Receipt Date: 20190909
  Transmission Date: 20191004
  Serious: No
  Sender: FDA-Public Use
  Company Number: US-PFIZER INC-2017513451

PATIENT
  Age: 64 Year
  Sex: Female
  Weight: 59 kg

DRUGS (3)
  1. IBRANCE [Suspect]
     Active Substance: PALBOCICLIB
     Indication: BREAST CANCER METASTATIC
     Dosage: 100 MG, 1X/DAY
     Dates: start: 201508, end: 201712
  2. LETROZOLE. [Concomitant]
     Active Substance: LETROZOLE
     Dosage: UNK
     Dates: start: 201508, end: 201712
  3. FEMARA [Concomitant]
     Active Substance: LETROZOLE
     Dosage: UNK UNK, 1X/DAY
     Dates: end: 201712

REACTIONS (16)
  - Oral pain [Unknown]
  - Pain in jaw [Unknown]
  - Oral disorder [Unknown]
  - Insomnia [Unknown]
  - Abdominal distension [Unknown]
  - White blood cell count decreased [Unknown]
  - Bone pain [Unknown]
  - Middle insomnia [Unknown]
  - Headache [Unknown]
  - Decreased appetite [Unknown]
  - Alopecia [Unknown]
  - Weight decreased [Recovered/Resolved]
  - Hepatic enzyme abnormal [Unknown]
  - Neoplasm progression [Unknown]
  - Pain [Unknown]
  - Cerebral disorder [Unknown]

NARRATIVE: CASE EVENT DATE: 201508
